FAERS Safety Report 8975305 (Version 1)
Quarter: 2012Q4

REPORT INFORMATION
  Report Type: 
  Country: US (occurrence: US)
  Receive Date: 20121219
  Receipt Date: 20121219
  Transmission Date: 20130627
  Serious: No
  Sender: FDA-Public Use
  Company Number: US-PFIZER INC-2012317486

PATIENT
  Sex: Female

DRUGS (3)
  1. PREMARIN [Suspect]
     Indication: HOT FLASHES
     Dosage: UNK
  2. PREMARIN [Suspect]
     Indication: NIGHT SWEATS
  3. PREMARIN [Suspect]
     Indication: HRT

REACTIONS (2)
  - Blood pressure increased [Unknown]
  - Abdominal discomfort [Unknown]
